FAERS Safety Report 14654560 (Version 1)
Quarter: 2018Q1

REPORT INFORMATION
  Report Type: Report from Study
  Country: US (occurrence: US)
  Receive Date: 20180319
  Receipt Date: 20180319
  Transmission Date: 20180509
  Serious: Yes (Other)
  Sender: FDA-Public Use
  Company Number: US-BIOGEN-2018BI00541247

PATIENT
  Sex: Female

DRUGS (4)
  1. AVONEX [Suspect]
     Active Substance: INTERFERON BETA-1A
     Indication: MULTIPLE SCLEROSIS
     Dosage: 1/4 DOSE WEEK ONE, 1/2 DOSE WEEK TWO, 3/4 DOSE WEEK THREE, FULL DOSE WEEK FOUR
     Route: 030
  2. AVONEX [Suspect]
     Active Substance: INTERFERON BETA-1A
     Dosage: 1/4 DOSE WEEK ONE, 1/2 DOSE WEEK TWO, 3/4 DOSE WEEK THREE, FULL DOSE WEEK FOUR
     Route: 030
  3. AVONEX [Suspect]
     Active Substance: INTERFERON BETA-1A
     Dosage: 1/4 DOSE WEEK ONE, 1/2 DOSE WEEK TWO, 3/4 DOSE WEEK THREE, FULL DOSE WEEK FOUR
     Route: 030
  4. AVONEX [Suspect]
     Active Substance: INTERFERON BETA-1A
     Dosage: 1/4 DOSE WEEK ONE, 1/2 DOSE WEEK TWO, 3/4 DOSE WEEK THREE, FULL DOSE WEEK FOUR
     Route: 030
     Dates: end: 201802

REACTIONS (2)
  - Pulmonary oedema [Unknown]
  - Bronchitis [Unknown]
